FAERS Safety Report 20155052 (Version 1)
Quarter: 2021Q4

REPORT INFORMATION
  Report Type: Other
  Country: US (occurrence: None)
  Receive Date: 20211207
  Receipt Date: 20211207
  Transmission Date: 20220303
  Serious: Yes (Other)
  Sender: FDA-Public Use
  Company Number: US-ROCHE-2971015

PATIENT
  Sex: Male

DRUGS (4)
  1. COTELLIC [Suspect]
     Active Substance: COBIMETINIB
     Indication: Malignant melanoma
     Dosage: TAKE 3 TABLET(S) BY MOUTH (60MG) EVERY DAY 3 WEEK(S) ON, 1 WEEK(S) OFF
     Route: 048
  2. COTELLIC [Suspect]
     Active Substance: COBIMETINIB
     Indication: Metastasis
  3. ZELBORAF [Suspect]
     Active Substance: VEMURAFENIB
     Indication: Metastasis
     Route: 048
  4. ZELBORAF [Suspect]
     Active Substance: VEMURAFENIB
     Indication: Metastasis

REACTIONS (1)
  - Intracranial aneurysm [Unknown]
